FAERS Safety Report 20082082 (Version 1)
Quarter: 2021Q4

REPORT INFORMATION
  Report Type: Spontaneous
  Country: US (occurrence: US)
  Receive Date: 20211117
  Receipt Date: 20211117
  Transmission Date: 20220303
  Serious: No
  Sender: FDA-Public Use
  Company Number: US-SA-SAC20211115000701

PATIENT
  Sex: Female

DRUGS (4)
  1. DUPIXENT [Suspect]
     Active Substance: DUPILUMAB
     Indication: Seborrhoeic keratosis
     Dosage: 300 MG, QOW
     Route: 058
     Dates: start: 20200422, end: 202110
  2. DUPIXENT [Suspect]
     Active Substance: DUPILUMAB
     Indication: Dermatitis atopic
     Dosage: 300 MG, QOW
     Route: 058
     Dates: start: 20211101
  3. DUPIXENT [Suspect]
     Active Substance: DUPILUMAB
     Indication: Xerosis
  4. DUPIXENT [Suspect]
     Active Substance: DUPILUMAB
     Indication: Radiation skin injury

REACTIONS (3)
  - Eye pain [Unknown]
  - Vision blurred [Unknown]
  - Product use in unapproved indication [Unknown]
